FAERS Safety Report 25210341 (Version 1)
Quarter: 2025Q2

REPORT INFORMATION
  Report Type: Spontaneous
  Country: US (occurrence: US)
  Receive Date: 20250417
  Receipt Date: 20250417
  Transmission Date: 20250717
  Serious: Yes (Life-Threatening, Hospitalization, Disabling, Other)
  Sender: SANOFI AVENTIS
  Company Number: US-MLMSERVICE-20250403-PI468288-00175-1

PATIENT
  Age: 65 Year
  Sex: Male
  Weight: 84 kg

DRUGS (6)
  1. ENOXAPARIN SODIUM [Suspect]
     Active Substance: ENOXAPARIN SODIUM
     Indication: Prophylaxis
  2. HEPARIN [Suspect]
     Active Substance: HEPARIN SODIUM
  3. HEPARIN [Suspect]
     Active Substance: HEPARIN SODIUM
  4. ASPIRIN [Concomitant]
     Active Substance: ASPIRIN
  5. CILOSTAZOL [Concomitant]
     Active Substance: CILOSTAZOL
  6. TICAGRELOR [Concomitant]
     Active Substance: TICAGRELOR

REACTIONS (8)
  - Pulmonary embolism [Unknown]
  - Pleuritic pain [Unknown]
  - Chest pain [Unknown]
  - Heparin-induced thrombocytopenia [Unknown]
  - Vascular stent thrombosis [Unknown]
  - Peripheral artery thrombosis [Unknown]
  - Pain in extremity [Unknown]
  - Arterial occlusive disease [Unknown]
